FAERS Safety Report 11426456 (Version 1)
Quarter: 2015Q3

REPORT INFORMATION
  Report Type: Spontaneous
  Country: US (occurrence: US)
  Receive Date: 20150821
  Receipt Date: 20150821
  Transmission Date: 20151125
  Serious: No
  Sender: FDA-Public Use
  Company Number: US-ELI_LILLY_AND_COMPANY-US201009007930

PATIENT
  Age: 44 Year
  Sex: Female

DRUGS (1)
  1. HUMULIN 70/30 [Suspect]
     Active Substance: INSULIN HUMAN
     Indication: DIABETES MELLITUS
     Dosage: 66 U, 2/D
     Dates: start: 20100927

REACTIONS (5)
  - Nausea [Unknown]
  - Fatigue [Unknown]
  - Dizziness [Unknown]
  - Poor quality drug administered [Unknown]
  - Malaise [Unknown]

NARRATIVE: CASE EVENT DATE: 20100927
